FAERS Safety Report 14342191 (Version 1)
Quarter: 2018Q1

REPORT INFORMATION
  Report Type: Spontaneous
  Country: FR (occurrence: FR)
  Receive Date: 20180102
  Receipt Date: 20180102
  Transmission Date: 20180509
  Serious: Yes (Other)
  Sender: FDA-Public Use
  Company Number: FR-BRACCO DIAGNOSTICS, INC.-2017FR05884

PATIENT
  Age: 55 Year
  Sex: Female

DRUGS (5)
  1. XYLOCAINE [Suspect]
     Active Substance: LIDOCAINE HYDROCHLORIDE
     Indication: PRODUCT USED FOR UNKNOWN INDICATION
     Dosage: 7 ML, SINGLE
     Route: 014
     Dates: start: 20171128, end: 20171128
  2. IOPAMIRON [Suspect]
     Active Substance: IOPAMIDOL
     Indication: DIAGNOSTIC PROCEDURE
     Dosage: 10 ML, SINGLE
     Route: 014
     Dates: start: 20171128, end: 20171128
  3. OROMONE [Concomitant]
     Active Substance: ESTRADIOL
  4. DOLIPRANE [Concomitant]
     Active Substance: ACETAMINOPHEN
  5. DIPROSTENE [Suspect]
     Active Substance: BETAMETHASONE DIPROPIONATE\BETAMETHASONE SODIUM PHOSPHATE
     Indication: PRODUCT USED FOR UNKNOWN INDICATION
     Dosage: 1 DF, SINGLE
     Route: 014
     Dates: start: 20171128, end: 20171128

REACTIONS (3)
  - Asthenia [Recovered/Resolved]
  - Erythema [Recovered/Resolved]
  - Lacrimation increased [Recovered/Resolved]

NARRATIVE: CASE EVENT DATE: 20171129
